FAERS Safety Report 7749616-5 (Version None)
Quarter: 2011Q3

REPORT INFORMATION
  Report Type: 
  Country: None (occurrence: None)
  Receive Date: 20110914
  Receipt Date: 20110228
  Transmission Date: 20111222
  Serious: No
  Sender: FDA-Public Use
  Company Number: US-BAYER-2011-049714

PATIENT
  Sex: Male

DRUGS (1)
  1. NEXAVAR [Suspect]
     Dosage: DAILY DOSE 400 MG AND GRADUALLY INCREASING
     Route: 048
     Dates: start: 20110201

REACTIONS (1)
  - MALAISE [None]
